FAERS Safety Report 12092076 (Version 3)
Quarter: 2016Q2

REPORT INFORMATION
  Report Type: Report from Study
  Country: US (occurrence: US)
  Receive Date: 20160219
  Receipt Date: 20160510
  Transmission Date: 20160815
  Serious: No
  Sender: FDA-Public Use
  Company Number: US-AMGEN-USASL2016018453

PATIENT
  Age: 51 Year
  Sex: Male

DRUGS (1)
  1. ENBREL [Suspect]
     Active Substance: ETANERCEPT
     Indication: PSORIATIC ARTHROPATHY
     Dosage: 50 MG, QWK
     Route: 065
     Dates: start: 20151231

REACTIONS (9)
  - Back pain [Unknown]
  - Malaise [Recovering/Resolving]
  - Arthralgia [Unknown]
  - Viral infection [Recovering/Resolving]
  - Musculoskeletal stiffness [Unknown]
  - Drug ineffective [Unknown]
  - Nasopharyngitis [Recovering/Resolving]
  - White blood cell count decreased [Recovering/Resolving]
  - Injection site pain [Unknown]

NARRATIVE: CASE EVENT DATE: 201603
